FAERS Safety Report 12241915 (Version 1)
Quarter: 2016Q2

REPORT INFORMATION
  Report Type: Spontaneous
  Country: US (occurrence: US)
  Receive Date: 20160406
  Receipt Date: 20160406
  Transmission Date: 20160815
  Serious: Yes (Disabling)
  Sender: FDA-Public Use
  Company Number: US-009507513-1604USA000934

PATIENT
  Sex: Male

DRUGS (11)
  1. SINGULAIR [Suspect]
     Active Substance: MONTELUKAST SODIUM
     Dosage: 10 MG, QD
     Route: 048
  2. DIAZEPAM. [Suspect]
     Active Substance: DIAZEPAM
     Dosage: 5 MG THREE TIMES A DAY AS NEEDED
     Route: 048
  3. METOPROLOL TARTRATE. [Suspect]
     Active Substance: METOPROLOL TARTRATE
     Dosage: 25 MG, BID
  4. TEMAZEPAM. [Suspect]
     Active Substance: TEMAZEPAM
     Dosage: 15 MG ONCE A DAY AS NEEDED
  5. FETZIMA [Suspect]
     Active Substance: LEVOMILNACIPRAN HYDROCHLORIDE
     Dosage: 120 MG, QD
  6. OMEPRAZOLE. [Suspect]
     Active Substance: OMEPRAZOLE
     Dosage: 40 MG, QD
     Route: 048
  7. AMLODIPINE [Suspect]
     Active Substance: AMLODIPINE BESYLATE
     Dosage: 5 MG, QD
  8. APRISO [Suspect]
     Active Substance: MESALAMINE
     Dosage: 0.375 MG FOUR TIMES A DAY
  9. GABAPENTIN. [Suspect]
     Active Substance: GABAPENTIN
     Dosage: 600 MG, TID
  10. ATORVASTATIN [Suspect]
     Active Substance: ATORVASTATIN
     Dosage: 40 MG, QD
  11. TRAMADOL HYDROCHLORIDE. [Suspect]
     Active Substance: TRAMADOL HYDROCHLORIDE
     Dosage: 100 MG, QID

REACTIONS (5)
  - Crohn^s disease [Unknown]
  - Neuralgia [Unknown]
  - Fracture [Unknown]
  - Fall [Unknown]
  - Nerve injury [Unknown]

NARRATIVE: CASE EVENT DATE: 2013
